FAERS Safety Report 8166579 (Version 4)
Quarter: 2013Q2

REPORT INFORMATION
  Report Type: Spontaneous
  Country: US (occurrence: US)
  Receive Date: 20111003
  Receipt Date: 20130523
  Transmission Date: 20140414
  Serious: Yes (Life-Threatening, Hospitalization)
  Sender: FDA-Public Use
  Company Number: US-BAYER-2011-093715

PATIENT
  Age: 24 Year
  Sex: Female
  Weight: 92.97 kg

DRUGS (15)
  1. YAZ [Suspect]
     Indication: PREMENSTRUAL DYSPHORIC DISORDER
     Dosage: UNK
     Dates: start: 200809, end: 200910
  2. YAZ [Suspect]
     Indication: PREMENSTRUAL SYNDROME
  3. YASMIN [Suspect]
     Indication: PREMENSTRUAL DYSPHORIC DISORDER
     Dosage: UNK
     Dates: start: 200809, end: 200910
  4. YASMIN [Suspect]
     Indication: PREMENSTRUAL SYNDROME
  5. OCELLA [Suspect]
     Indication: PREMENSTRUAL DYSPHORIC DISORDER
     Dosage: UNK
     Dates: start: 200809, end: 200910
  6. OCELLA [Suspect]
     Indication: PREMENSTRUAL SYNDROME
  7. LEXAPRO [Concomitant]
     Route: 048
  8. BENTYL [Concomitant]
  9. VITAMIN C [Concomitant]
  10. NSAID^S [Concomitant]
  11. MACROBID [Concomitant]
  12. ANAPLEX DM [Concomitant]
  13. SULFAMETHOXAZOLE [Concomitant]
  14. CEFALEXIN MONOHYDRATE [Concomitant]
  15. ZITHROMAX [Concomitant]

REACTIONS (8)
  - Thrombosis [None]
  - Colitis ischaemic [None]
  - Injury [None]
  - Pain [None]
  - General physical health deterioration [None]
  - Anxiety [None]
  - Anhedonia [None]
  - Off label use [None]
